FAERS Safety Report 7493731-0 (Version None)
Quarter: 2011Q2

REPORT INFORMATION
  Report Type: 
  Country: None (occurrence: None)
  Receive Date: 20110520
  Receipt Date: 20110517
  Transmission Date: 20111010
  Serious: Yes (Death)
  Sender: FDA-Public Use
  Company Number: JP-ELI_LILLY_AND_COMPANY-JP201103008209

PATIENT
  Sex: Male
  Weight: 51.5 kg

DRUGS (11)
  1. CALTAN [Concomitant]
     Dosage: 3 DF, QD
     Route: 048
     Dates: end: 20110328
  2. ALFAROL [Concomitant]
     Dosage: 0.5 UG, QD
     Route: 048
     Dates: end: 20110328
  3. ALIMTA [Suspect]
     Indication: LUNG ADENOCARCINOMA STAGE IV
     Dosage: 750 MG, UNK
     Route: 042
     Dates: start: 20110315, end: 20110315
  4. PANVITAN [Concomitant]
     Indication: PROPHYLAXIS
     Dosage: 1 G, QD
     Route: 048
     Dates: start: 20110217, end: 20110328
  5. HYDROXOCOBALAMIN ACETATE [Concomitant]
     Indication: PROPHYLAXIS
     Dosage: 1000 UG, UNK
     Dates: start: 20110217
  6. ASPIRIN [Concomitant]
     Dosage: 1 DF, QD
     Route: 048
     Dates: end: 20110328
  7. NOVORAPID [Concomitant]
     Dosage: 13 IU, QD
     Route: 058
  8. ALTAT [Concomitant]
     Dosage: 1 DF, QD
     Route: 048
     Dates: end: 20110328
  9. LASIX [Concomitant]
     Dosage: 160 MG, QD
     Route: 048
     Dates: end: 20110328
  10. DECADRON                                /NET/ [Concomitant]
     Indication: BRAIN OEDEMA
     Dosage: 6.6 MG, QD
     Route: 042
     Dates: start: 20110312, end: 20110324
  11. SELBEX [Concomitant]
     Dosage: 3 DF, QD
     Route: 048
     Dates: end: 20110328

REACTIONS (2)
  - SEPSIS [None]
  - BONE MARROW FAILURE [None]
